FAERS Safety Report 21557333 (Version 1)
Quarter: 2022Q4

REPORT INFORMATION
  Report Type: Report from Study
  Country: CO (occurrence: CO)
  Receive Date: 20221105
  Receipt Date: 20221105
  Transmission Date: 20230112
  Serious: Yes (Other)
  Sender: FDA-Public Use
  Company Number: CO-002147023-NVSC2022CO249492

PATIENT
  Sex: Female
  Weight: 38 kg

DRUGS (1)
  1. LOSARTAN [Suspect]
     Active Substance: LOSARTAN
     Indication: Hypertension
     Dosage: 50 MG, Q12H (STARTED 50 YEARS AGO)
     Route: 048

REACTIONS (2)
  - Hypothyroidism [Unknown]
  - Off label use [Unknown]
